FAERS Safety Report 17430952 (Version 2)
Quarter: 2020Q1

REPORT INFORMATION
  Report Type: Spontaneous
  Country: US (occurrence: US)
  Receive Date: 20200218
  Receipt Date: 20200313
  Transmission Date: 20200409
  Serious: Yes (Hospitalization, Other)
  Sender: FDA-Public Use
  Company Number: US-ALKERMES INC.-ALK-2020-000717

PATIENT
  Age: 36 Year
  Sex: Male

DRUGS (2)
  1. VIVITROL [Suspect]
     Active Substance: NALTREXONE
     Indication: ALCOHOLISM
     Dosage: 380 MG, QMO
     Route: 030
     Dates: start: 20200213
  2. VIVITROL [Suspect]
     Active Substance: NALTREXONE
     Dosage: 380 MG, QMO
     Route: 030

REACTIONS (8)
  - Injection site pain [Recovering/Resolving]
  - Inadequate analgesia [Recovering/Resolving]
  - Blood creatine phosphokinase increased [Recovering/Resolving]
  - Injection site bruising [Recovering/Resolving]
  - Injection site necrosis [Recovering/Resolving]
  - Pain [Recovering/Resolving]
  - Injection site reaction [Recovering/Resolving]
  - Skin discolouration [Recovering/Resolving]

NARRATIVE: CASE EVENT DATE: 20200213
